FAERS Safety Report 13567866 (Version 1)
Quarter: 2017Q2

REPORT INFORMATION
  Report Type: Spontaneous
  Country: DE (occurrence: None)
  Receive Date: 20170519
  Receipt Date: 20170519
  Transmission Date: 20170830
  Serious: Yes (Other)
  Sender: FDA-Public Use
  Company Number: DE2017K3132LIT

PATIENT
  Age: 70 Year
  Sex: Male

DRUGS (6)
  1. SIMVASTATIN GENERIC (SIMVASTATIN) [Suspect]
     Active Substance: SIMVASTATIN
  2. ACETYLSALICYLIC ACID WORLD (ACETYLSALICYLIC ACID) [Suspect]
     Active Substance: ASPIRIN
  3. ENALAPRIL GENERIC (ENALAPRIL) UNKNOWN [Suspect]
     Active Substance: ENALAPRIL
  4. METOPROLOL GENERIC (METOPROLOL) [Suspect]
     Active Substance: METOPROLOL
  5. ALLOPURINOL. [Suspect]
     Active Substance: ALLOPURINOL
  6. FUROSEMIDE. [Suspect]
     Active Substance: FUROSEMIDE

REACTIONS (4)
  - Occupational exposure to air contaminants [None]
  - Basal cell carcinoma [None]
  - Actinic keratosis [None]
  - Photosensitivity reaction [None]
